FAERS Safety Report 10685183 (Version 1)
Quarter: 2014Q4

REPORT INFORMATION
  Report Type: Spontaneous
  Country: US (occurrence: None)
  Receive Date: 20141209
  Receipt Date: 20141209
  Transmission Date: 20150529
  Serious: Yes (Other)
  Sender: FDA-Public Use
  Company Number: 419928N

PATIENT
  Age: 24 Year
  Sex: Female
  Weight: 72.6 kg

DRUGS (3)
  1. NOVOLOG [Suspect]
     Active Substance: INSULIN ASPART
     Indication: TYPE 1 DIABETES MELLITUS
     Route: 058
  2. LEVOTHYROXINE (LEVOTHYROXINE) [Concomitant]
     Active Substance: LEVOTHYROXINE
  3. LEVEMIR [Suspect]
     Active Substance: INSULIN DETEMIR
     Indication: TYPE 1 DIABETES MELLITUS
     Dosage: SUBCUTAN-PUMP
     Route: 058
     Dates: start: 20140811

REACTIONS (4)
  - Drug dispensing error [None]
  - Hyperglycaemia [None]
  - Wrong drug administered [None]
  - Hypoglycaemic unconsciousness [None]

NARRATIVE: CASE EVENT DATE: 20140702
